FAERS Safety Report 9735681 (Version 4)
Quarter: 2014Q2

REPORT INFORMATION
  Report Type: Report from Study
  Country: CA (occurrence: CA)
  Receive Date: 20131206
  Receipt Date: 20140609
  Transmission Date: 20141212
  Serious: Yes (Other)
  Sender: FDA-Public Use
  Company Number: PHHY2013CA142195

PATIENT
  Sex: Male
  Weight: 68 kg

DRUGS (5)
  1. CLOZARIL [Suspect]
     Indication: SCHIZOPHRENIA
     Dosage: 400 MG, UNK
     Route: 048
     Dates: start: 19990526, end: 20140216
  2. CLOZARIL [Suspect]
     Dosage: UNK
     Route: 048
     Dates: start: 20140401
  3. BENZTROPINE [Concomitant]
     Dosage: 1 MG, QD (1 MG, QAM)
  4. RISPERIDONE [Concomitant]
     Dosage: 3 MG, QHS
  5. CLONAZEPAM [Concomitant]
     Dosage: 0.25 MG, DAILY

REACTIONS (7)
  - Bundle branch block left [Unknown]
  - Electrocardiogram abnormal [Unknown]
  - Cardiomyopathy [Unknown]
  - Sinus tachycardia [Unknown]
  - Tachycardia [Unknown]
  - Ventricular extrasystoles [Unknown]
  - Palpitations [Unknown]
